FAERS Safety Report 6864529-9 (Version None)
Quarter: 2010Q3

REPORT INFORMATION
  Report Type: 
  Country: None (occurrence: None)
  Receive Date: 20100721
  Receipt Date: 20090114
  Transmission Date: 20110219
  Serious: Yes (Other)
  Sender: FDA-Public Use
  Company Number: US-PFIZER INC-2008026489

PATIENT
  Sex: Male
  Weight: 136.1 kg

DRUGS (7)
  1. CHANTIX [Suspect]
     Indication: SMOKING CESSATION THERAPY
     Dates: start: 20080320
  2. HYDROCODONE [Concomitant]
  3. SOMA [Concomitant]
  4. XANAX [Concomitant]
  5. REGLAN [Concomitant]
  6. PROTONIX [Concomitant]
  7. PRENATAL VITAMINS [Concomitant]

REACTIONS (1)
  - AGITATION [None]
